FAERS Safety Report 20969083 (Version 1)
Quarter: 2022Q2

REPORT INFORMATION
  Report Type: Report from Study
  Country: US (occurrence: US)
  Receive Date: 20220616
  Receipt Date: 20220616
  Transmission Date: 20220721
  Serious: No
  Sender: FDA-Public Use
  Company Number: US-NOVARTISTESTPH-NVSC2022US138612

PATIENT
  Sex: Female

DRUGS (2)
  1. KISQALI [Suspect]
     Active Substance: RIBOCICLIB
     Indication: Breast cancer
     Dosage: 600 MG, QD
     Route: 048
  2. PREDNISONE [Suspect]
     Active Substance: PREDNISONE
     Indication: Sciatica
     Dosage: UNK
     Route: 065

REACTIONS (5)
  - Abdominal discomfort [Recovering/Resolving]
  - Heart rate increased [Unknown]
  - Feeling of body temperature change [Unknown]
  - White blood cell count decreased [Unknown]
  - Fatigue [Recovering/Resolving]
